FAERS Safety Report 23212885 (Version 13)
Quarter: 2024Q4

REPORT INFORMATION
  Report Type: Report from Study
  Country: CO (occurrence: CO)
  Receive Date: 20231121
  Receipt Date: 20241012
  Transmission Date: 20250114
  Serious: Yes (Hospitalization, Other)
  Sender: TAKEDA
  Company Number: CO-TAKEDA-2023TUS094959

PATIENT
  Age: 14 Year
  Sex: Male
  Weight: 64 kg

DRUGS (2)
  1. HUMAN IMMUNOGLOBULIN G\HYALURONIDASE RECOMBINANT HUMAN [Suspect]
     Active Substance: HUMAN IMMUNOGLOBULIN G\HYALURONIDASE (HUMAN RECOMBINANT)
     Indication: Primary immunodeficiency syndrome
     Dosage: 60 GRAM, Q3WEEKS
     Route: 058
     Dates: start: 20230906
  2. HUMAN IMMUNOGLOBULIN G\HYALURONIDASE RECOMBINANT HUMAN [Suspect]
     Active Substance: HUMAN IMMUNOGLOBULIN G\HYALURONIDASE (HUMAN RECOMBINANT)
     Dosage: 65 GRAM, Q3WEEKS
     Route: 058
     Dates: end: 20240409

REACTIONS (28)
  - Respiratory arrest [Unknown]
  - Renal failure [Unknown]
  - Fluid retention [Unknown]
  - Blood creatinine increased [Unknown]
  - COVID-19 [Unknown]
  - Hypertensive crisis [Unknown]
  - Weight decreased [Unknown]
  - General physical health deterioration [Unknown]
  - Haemoglobin decreased [Unknown]
  - Blood pressure increased [Unknown]
  - Diarrhoea [Unknown]
  - Malaise [Unknown]
  - Blood test abnormal [Unknown]
  - Generalised oedema [Unknown]
  - Weight increased [Unknown]
  - Hepatic function abnormal [Unknown]
  - Platelet count increased [Unknown]
  - Blood potassium decreased [Unknown]
  - Eosinophil count decreased [Unknown]
  - Basophil count increased [Unknown]
  - Blood thyroid stimulating hormone increased [Unknown]
  - Blood calcium decreased [Unknown]
  - Blood urea increased [Unknown]
  - Body height increased [Unknown]
  - Puncture site pain [Unknown]
  - Inappropriate schedule of product administration [Unknown]
  - Product prescribing error [Unknown]
  - Incorrect dose administered [Unknown]

NARRATIVE: CASE EVENT DATE: 20230928
